FAERS Safety Report 6811272-8 (Version None)
Quarter: 2010Q2

REPORT INFORMATION
  Report Type: 
  Country: None (occurrence: None)
  Receive Date: 20100629
  Receipt Date: 20100629
  Transmission Date: 20101027
  Serious: No
  Sender: FDA-Public Use
  Company Number: None

PATIENT
  Age: 63 Year
  Sex: Male
  Weight: 117 kg

DRUGS (2)
  1. DIAZEPAM [Suspect]
     Indication: TREMOR
     Dosage: 2 MG TID PO
     Route: 048
     Dates: start: 20100602, end: 20100616
  2. MORPHINE [Suspect]
     Indication: PAIN
     Dosage: 60 MG TID PO
     Route: 048
     Dates: start: 20100421

REACTIONS (5)
  - CONFUSIONAL STATE [None]
  - CONVULSION [None]
  - LETHARGY [None]
  - SEDATION [None]
  - UNRESPONSIVE TO STIMULI [None]
